FAERS Safety Report 5377491-5 (Version None)
Quarter: 2007Q3

REPORT INFORMATION
  Report Type: 
  Country: None (occurrence: None)
  Receive Date: 20070703
  Receipt Date: 20070621
  Transmission Date: 20080115
  Serious: Yes (Hospitalization)
  Sender: FDA-Public Use
  Company Number: SE-ROCHE-498551

PATIENT
  Age: 20 Year
  Sex: Female

DRUGS (4)
  1. LARIAM [Suspect]
     Indication: DRUG USE FOR UNKNOWN INDICATION
     Dosage: THE PATIENT TOOK A TOTAL OF TWO TABLETS. REPORTED INDICATION (NOT TRANSLATED): MORBUS INFECTIOSUS S+
     Route: 048
     Dates: start: 20070101, end: 20070101
  2. NORFLOXACIN [Suspect]
     Indication: INFECTION PARASITIC
     Dosage: FORM FILM COATED (FC) TABLETS.
     Route: 048
     Dates: start: 20070101, end: 20070101
  3. MALARONE [Suspect]
     Indication: DRUG USE FOR UNKNOWN INDICATION
     Dosage: FORM: FILM COATED (FC) TABLETS.
     Route: 048
     Dates: start: 20070116, end: 20070217
  4. UNSPECIFIED DRUG [Suspect]
     Indication: DRUG USE FOR UNKNOWN INDICATION
     Route: 065
     Dates: start: 20070201, end: 20070201

REACTIONS (3)
  - DIPLOPIA [None]
  - HEADACHE [None]
  - NEUROPATHY [None]
